FAERS Safety Report 5579948-0 (Version None)
Quarter: 2008Q1

REPORT INFORMATION
  Report Type: 
  Country: None (occurrence: None)
  Receive Date: 20080103
  Receipt Date: 20071221
  Transmission Date: 20080703
  Serious: Yes (Other)
  Sender: FDA-Public Use
  Company Number: PHBS2007JP20922

PATIENT
  Age: 8 Year
  Sex: Female

DRUGS (5)
  1. GLEEVEC [Suspect]
     Indication: ACUTE LYMPHOCYTIC LEUKAEMIA
     Route: 048
  2. ALLBFM90HR [Concomitant]
     Route: 065
  3. HEMATOPOETIC PROGENITOR CELLS HUMAN [Concomitant]
     Route: 065
     Dates: start: 20021001
  4. DASATINIB [Concomitant]
     Dates: start: 20070301
  5. BLOOD TRANSFUSION, AUXILIARY PRODUCTS [Concomitant]
     Route: 065

REACTIONS (8)
  - BLOOD CREATINE PHOSPHOKINASE INCREASED [None]
  - BLOOD CREATINE PHOSPHOKINASE MB INCREASED [None]
  - BONE MARROW FAILURE [None]
  - ENTEROCOLITIS HAEMORRHAGIC [None]
  - GANGRENE [None]
  - HYPOPROTEINAEMIA [None]
  - PURPURA FULMINANS [None]
  - SEPSIS [None]
